FAERS Safety Report 17730759 (Version 1)
Quarter: 2020Q2

REPORT INFORMATION
  Report Type: Report from Study
  Country: US (occurrence: US)
  Receive Date: 20200430
  Receipt Date: 20200430
  Transmission Date: 20200714
  Serious: Yes (Hospitalization)
  Sender: FDA-Public Use
  Company Number: US-ACTELION-A-NJ2019-196361

PATIENT
  Age: 18 Year
  Sex: Female

DRUGS (4)
  1. AMBRISENTAN [Concomitant]
     Active Substance: AMBRISENTAN
  2. REMODULIN [Concomitant]
     Active Substance: TREPROSTINIL
     Route: 042
  3. SILDENAFIL. [Concomitant]
     Active Substance: SILDENAFIL
  4. UPTRAVI [Suspect]
     Active Substance: SELEXIPAG
     Indication: PULMONARY ARTERIAL HYPERTENSION
     Dosage: 600 MCG AM AND 800 MCG PM
     Route: 048
     Dates: start: 20190518

REACTIONS (6)
  - Diarrhoea [Unknown]
  - Product dose omission [Unknown]
  - Dyspnoea [Unknown]
  - Memory impairment [Unknown]
  - Headache [Unknown]
  - Therapy change [Unknown]

NARRATIVE: CASE EVENT DATE: 201909
